FAERS Safety Report 24239258 (Version 2)
Quarter: 2024Q3

REPORT INFORMATION
  Report Type: Spontaneous
  Country: NO (occurrence: NO)
  Receive Date: 20240822
  Receipt Date: 20240912
  Transmission Date: 20241016
  Serious: Yes (Death, Other)
  Sender: ORGANON
  Company Number: None

PATIENT
  Age: 46 Year
  Sex: Female

DRUGS (5)
  1. REMERON [Interacting]
     Active Substance: MIRTAZAPINE
     Indication: Schizoaffective disorder
     Dosage: 30 MILLIGRAM, QD
     Route: 048
  2. ATARAX [Interacting]
     Active Substance: HYDROXYZINE HYDROCHLORIDE
     Indication: Anxiety
     Dosage: 25 MILLIGRAM, Q8H
     Route: 048
  3. LEVOTHYROXINE SODIUM [Interacting]
     Active Substance: LEVOTHYROXINE SODIUM
     Dosage: 50 MICROGRAM, QD
     Route: 048
  4. IMOVANE [Interacting]
     Active Substance: ZOPICLONE
     Indication: Sleep disorder
     Dosage: 7.5 MILLIGRAM, QD
     Route: 048
  5. OXAZEPAM [Interacting]
     Active Substance: OXAZEPAM
     Indication: Anxiety
     Dosage: 15 MILLIGRAM, Q8H
     Route: 048

REACTIONS (1)
  - Respiratory depression [Fatal]
